FAERS Safety Report 6718121-7 (Version None)
Quarter: 2010Q2

REPORT INFORMATION
  Report Type: 
  Country: None (occurrence: None)
  Receive Date: 20100510
  Receipt Date: 20100430
  Transmission Date: 20101027
  Serious: Yes (Hospitalization)
  Sender: FDA-Public Use
  Company Number: A0858683A

PATIENT
  Age: 47 Year
  Sex: Female
  Weight: 166.4 kg

DRUGS (10)
  1. AVANDIA [Suspect]
     Route: 048
     Dates: end: 20070501
  2. AVANDAMET [Suspect]
     Indication: DIABETES MELLITUS
     Route: 048
  3. LEVOXYL [Concomitant]
  4. NORETHINDRONE AND ETHINYL ESTRADIOL [Concomitant]
  5. ADVAIR DISKUS 100/50 [Concomitant]
  6. LISINOPRIL [Concomitant]
  7. METFORMIN HYDROCHLORIDE [Concomitant]
  8. COMBIVENT [Concomitant]
  9. PRAVACHOL [Concomitant]
  10. FLONASE [Concomitant]

REACTIONS (2)
  - CARDIAC FAILURE CONGESTIVE [None]
  - CARDIOMYOPATHY [None]
